FAERS Safety Report 4626253-2 (Version None)
Quarter: 2005Q2

REPORT INFORMATION
  Report Type: 
  Country: None (occurrence: None)
  Receive Date: 20050404
  Receipt Date: 20041026
  Transmission Date: 20051028
  Serious: Yes (Disabling)
  Sender: FDA-Public Use
  Company Number: US-ROCHE-384576

PATIENT
  Sex: Male
  Weight: 76.2 kg

DRUGS (2)
  1. ACCUTANE [Suspect]
     Indication: ACNE
     Route: 048
     Dates: start: 19880615, end: 19910615
  2. ACCUTANE [Suspect]
     Route: 048
     Dates: start: 19940615, end: 19970615

REACTIONS (19)
  - ABNORMAL BEHAVIOUR [None]
  - ANHEDONIA [None]
  - ANXIETY [None]
  - ARTHRITIS [None]
  - BIPOLAR DISORDER [None]
  - CATARACT [None]
  - CHRONIC FATIGUE SYNDROME [None]
  - COLITIS [None]
  - CROHN'S DISEASE [None]
  - DEPRESSION [None]
  - GASTROINTESTINAL DISORDER [None]
  - INFLAMMATORY BOWEL DISEASE [None]
  - INJURY [None]
  - INSOMNIA [None]
  - INTESTINAL HAEMORRHAGE [None]
  - MOOD SWINGS [None]
  - MULTI-ORGAN DISORDER [None]
  - RECTAL HAEMORRHAGE [None]
  - SUICIDAL IDEATION [None]
